FAERS Safety Report 7463855-2 (Version None)
Quarter: 2011Q2

REPORT INFORMATION
  Report Type: 
  Country: None (occurrence: None)
  Receive Date: 20110506
  Receipt Date: 20110505
  Transmission Date: 20111010
  Serious: Yes (Other)
  Sender: FDA-Public Use
  Company Number: US-BRISTOL-MYERS SQUIBB COMPANY-15599905

PATIENT
  Age: 24 Year
  Sex: Female

DRUGS (4)
  1. ADDERALL 10 [Concomitant]
  2. ABILIFY [Suspect]
     Indication: BIPOLAR DISORDER
     Route: 048
  3. NEURONTIN [Concomitant]
  4. LAMICTAL [Concomitant]

REACTIONS (5)
  - DEPRESSION [None]
  - DELUSION [None]
  - AGGRESSION [None]
  - WEIGHT INCREASED [None]
  - CONSTRICTED AFFECT [None]
